FAERS Safety Report 4303229-6 (Version None)
Quarter: 2004Q1

REPORT INFORMATION
  Report Type: 
  Country: None (occurrence: None)
  Receive Date: 20040223
  Receipt Date: 20040210
  Transmission Date: 20041129
  Serious: Yes (Hospitalization, Other)
  Sender: FDA-Public Use
  Company Number: HQWYE477409DEC03

PATIENT
  Age: 48 Year
  Sex: Male
  Weight: 80 kg

DRUGS (22)
  1. RAPAMUNE [Suspect]
     Indication: PROPHYLAXIS AGAINST TRANSPLANT REJECTION
     Dosage: 8 MG 1 X PER 1 DAY, ORAL
     Route: 048
     Dates: start: 20031027
  2. PREDNISONE [Suspect]
     Indication: IMMUNOSUPPRESSANT DRUG THERAPY
     Dosage: 20 MG 1 X PER 1 DAY
     Dates: end: 20030101
  3. NEORAL [Concomitant]
  4. CLONIDINE [Concomitant]
  5. NORVASC [Concomitant]
  6. CARDURA [Concomitant]
  7. ATENOLOL [Concomitant]
  8. MINOXIDIL [Concomitant]
  9. ISORDIL [Concomitant]
  10. VICODIN [Concomitant]
  11. LASIX [Concomitant]
  12. COMBIVENT [Concomitant]
  13. PROTONIX [Concomitant]
  14. NEUTRA-PHOS (POTASSIUM PHOSPHATE DIBASIC/POTASSIUM PHOSPHATE MONOBASIC [Concomitant]
  15. MYLANTA (ALUMINIUM HYDROXIDE GEL, DRIED/DIMETICONE, ACTIVATED/MAGNESIU [Concomitant]
  16. BACTRIM [Concomitant]
  17. FERROUS SULFATE TAB [Concomitant]
  18. MULTIVITAMIN ^LAPPE^ (VITAMINS NOS) [Concomitant]
  19. NYSTATIN [Concomitant]
  20. GANCICLOVIR SODIUM [Concomitant]
  21. INSULIN [Concomitant]
  22. NPH INSULIN [Concomitant]

REACTIONS (12)
  - BLOOD PRESSURE SYSTOLIC INCREASED [None]
  - BODY TEMPERATURE DECREASED [None]
  - CATHETER SITE OEDEMA [None]
  - GENITALIA EXTERNAL PAINFUL [None]
  - HAEMATOCRIT DECREASED [None]
  - HAEMOGLOBIN DECREASED [None]
  - OEDEMA PERIPHERAL [None]
  - PELVIC PAIN [None]
  - PERIRENAL HAEMATOMA [None]
  - RETROPERITONEAL HAEMATOMA [None]
  - SCROTAL OEDEMA [None]
  - UMBILICAL HERNIA [None]
